FAERS Safety Report 15822952 (Version 4)
Quarter: 2019Q2

REPORT INFORMATION
  Report Type: Report from Study
  Country: DE (occurrence: DE)
  Receive Date: 20190114
  Receipt Date: 20190424
  Transmission Date: 20190711
  Serious: Yes (Hospitalization)
  Sender: FDA-Public Use
  Company Number: DE-SA-2019SA006088

PATIENT
  Age: 63 Year
  Sex: Male
  Weight: 70.3 kg

DRUGS (2)
  1. CABAZITAXEL [Suspect]
     Active Substance: CABAZITAXEL
     Dosage: 20 MG/M2, QCY
     Route: 042
     Dates: start: 20180503, end: 20180503
  2. CABAZITAXEL [Suspect]
     Active Substance: CABAZITAXEL
     Indication: PROSTATE CANCER METASTATIC
     Dosage: 15 MG/M2, QCY
     Route: 042
     Dates: start: 20181227, end: 20181227

REACTIONS (1)
  - Diverticulitis [Not Recovered/Not Resolved]
